FAERS Safety Report 8472562-9 (Version None)
Quarter: 2012Q2

REPORT INFORMATION
  Report Type: 
  Country: None (occurrence: None)
  Receive Date: 20120627
  Receipt Date: 20120301
  Transmission Date: 20120825
  Serious: Yes (Other)
  Sender: FDA-Public Use
  Company Number: US-AMGEN-USASP2012004833

PATIENT
  Age: 33 Year
  Sex: Male
  Weight: 86.18 kg

DRUGS (2)
  1. PROCRIT [Suspect]
     Dosage: 8000 IU, QWK
     Route: 058
     Dates: start: 20111107
  2. PROCRIT [Suspect]
     Indication: RENAL TRANSPLANT
     Dosage: 5000 IU, QWK
     Route: 058
     Dates: start: 20111017, end: 20111107

REACTIONS (1)
  - DRUG INEFFECTIVE [None]
